FAERS Safety Report 8619449 (Version 2)
Quarter: 2013Q1

REPORT INFORMATION
  Report Type: Spontaneous
  Country: FR (occurrence: FR)
  Receive Date: 20120618
  Receipt Date: 20130125
  Transmission Date: 20140127
  Serious: Yes (Hospitalization)
  Sender: FDA-Public Use
  Company Number: FR-PFIZER INC-2012141900

PATIENT
  Age: 45 Year
  Sex: Female

DRUGS (11)
  1. TAZOCILLINE [Suspect]
     Indication: CYSTIC FIBROSIS
     Dosage: UNK
     Route: 042
     Dates: start: 20120428, end: 20120504
  2. TAZOCILLINE [Suspect]
     Indication: PSEUDOMONAS INFECTION
  3. NEBCINE [Suspect]
     Indication: CYSTIC FIBROSIS
     Dosage: 650 MG DAILY
     Route: 042
     Dates: start: 20120428, end: 20120504
  4. NEBCINE [Suspect]
     Indication: PSEUDOMONAS INFECTION
  5. APROVEL [Concomitant]
  6. CREON [Concomitant]
  7. COLIMYCINE [Concomitant]
  8. MOTILIUM [Concomitant]
  9. DEBRIDAT [Concomitant]
  10. QVAR [Concomitant]
  11. MYNOCINE [Concomitant]

REACTIONS (2)
  - Renal failure acute [Recovering/Resolving]
  - Renal tubular necrosis [Recovering/Resolving]
